FAERS Safety Report 12238860 (Version 2)
Quarter: 2016Q2

REPORT INFORMATION
  Report Type: Spontaneous
  Country: FR (occurrence: FR)
  Receive Date: 20160405
  Receipt Date: 20160405
  Transmission Date: 20160815
  Serious: Yes (Death, Hospitalization, Other)
  Sender: FDA-Public Use
  Company Number: FR-BAXTER-2016BAX016622

PATIENT
  Age: 72 Year
  Sex: Male

DRUGS (11)
  1. ENDOXAN 50 MG, COMPRIM? ENROB? [Suspect]
     Active Substance: CYCLOPHOSPHAMIDE
     Indication: ACQUIRED HAEMOPHILIA
     Dosage: IN THE MORNING
     Route: 048
     Dates: start: 20151214, end: 20160203
  2. PREDNISONE. [Suspect]
     Active Substance: PREDNISONE
     Dosage: THEN DECREASED BY 10 MG EVERY 10 DAYS
     Route: 048
     Dates: start: 20160129, end: 20160208
  3. PREDNISONE. [Suspect]
     Active Substance: PREDNISONE
     Route: 048
     Dates: start: 20160218, end: 20160224
  4. DIFFU K [Concomitant]
     Active Substance: POTASSIUM CHLORIDE
     Indication: PRODUCT USED FOR UNKNOWN INDICATION
     Dosage: AT LUNCH
     Route: 048
     Dates: end: 20160215
  5. SERETIDE [Suspect]
     Active Substance: FLUTICASONE PROPIONATE\SALMETEROL XINAFOATE
     Indication: PRODUCT USED FOR UNKNOWN INDICATION
     Dosage: 250/25 UG DOSE, SUSPENSION FOR INHALATION IN PRESSURED VIALS, ONE PUFF IN MORNING AND TWO PUFFS IN T
     Route: 055
     Dates: end: 20160218
  6. PREDNISONE. [Suspect]
     Active Substance: PREDNISONE
     Dosage: THEN DECREASED BY 10 MG EVERY 10 DAYS
     Route: 048
     Dates: start: 20160208, end: 20160218
  7. HYDROCHLOROTHIAZIDE. [Concomitant]
     Active Substance: HYDROCHLOROTHIAZIDE
     Indication: PRODUCT USED FOR UNKNOWN INDICATION
     Dosage: IN THE MORNING
     Route: 048
     Dates: end: 20160213
  8. CANDESARTAN CILEXETIL. [Concomitant]
     Active Substance: CANDESARTAN CILEXETIL
     Indication: PRODUCT USED FOR UNKNOWN INDICATION
     Dosage: IN THE MORNING
     Route: 048
     Dates: end: 20160219
  9. ATARAX [Concomitant]
     Active Substance: HYDROXYZINE\HYDROXYZINE HYDROCHLORIDE
     Indication: PRODUCT USED FOR UNKNOWN INDICATION
     Route: 048
     Dates: end: 20160209
  10. PANTOPRAZOLE [Concomitant]
     Active Substance: PANTOPRAZOLE SODIUM
     Indication: PRODUCT USED FOR UNKNOWN INDICATION
     Route: 048
  11. PREDNISONE. [Suspect]
     Active Substance: PREDNISONE
     Indication: PRODUCT USED FOR UNKNOWN INDICATION
     Dosage: THEN DECREASED BY 10 MG EVERY 10 DAYS
     Route: 048
     Dates: start: 20160119, end: 20160129

REACTIONS (13)
  - Pneumocystis jirovecii infection [Unknown]
  - Death [Fatal]
  - Sepsis [Unknown]
  - Hypoxia [Unknown]
  - Haemodynamic instability [Unknown]
  - Device related infection [Unknown]
  - Oedema peripheral [Unknown]
  - Cardio-respiratory arrest [Unknown]
  - Respiratory tract infection fungal [Unknown]
  - Pancytopenia [Unknown]
  - Endocarditis [Unknown]
  - Condition aggravated [Unknown]
  - Dyspnoea [Unknown]

NARRATIVE: CASE EVENT DATE: 20160203
